FAERS Safety Report 16020111 (Version 3)
Quarter: 2019Q2

REPORT INFORMATION
  Report Type: Report from Study
  Country: None (occurrence: DE)
  Receive Date: 20190228
  Receipt Date: 20190617
  Transmission Date: 20190711
  Serious: Yes (Other)
  Sender: FDA-Public Use
  Company Number: DE-ABBVIE-18K-062-2539712-00

PATIENT
  Sex: Female
  Weight: 52 kg

DRUGS (1)
  1. MAVIRET [Suspect]
     Active Substance: GLECAPREVIR\PIBRENTASVIR
     Indication: HEPATITIS C
     Dosage: 100MG/40MG
     Route: 048
     Dates: start: 20180115, end: 20180311

REACTIONS (4)
  - Caesarean section [Unknown]
  - Live birth [Unknown]
  - Exposure during pregnancy [Unknown]
  - Premature delivery [Unknown]
